FAERS Safety Report 13196711 (Version 1)
Quarter: 2017Q1

REPORT INFORMATION
  Report Type: Spontaneous
  Country: FR (occurrence: FR)
  Receive Date: 20170208
  Receipt Date: 20170208
  Transmission Date: 20170428
  Serious: Yes (Life-Threatening, Other)
  Sender: FDA-Public Use
  Company Number: FR-009507513-1702FRA001276

PATIENT
  Age: 29 Year
  Sex: Female

DRUGS (1)
  1. NEXPLANON [Suspect]
     Active Substance: ETONOGESTREL
     Indication: CONTRACEPTION
     Dosage: 1 IMPLANT, UNK
     Route: 042

REACTIONS (9)
  - Vaginal haemorrhage [Unknown]
  - Device embolisation [Recovered/Resolved]
  - Device deployment issue [Recovered/Resolved]
  - Complication associated with device [Recovered/Resolved]
  - Headache [Unknown]
  - Device dislocation [Recovered/Resolved]
  - Surgery [Unknown]
  - Uterine haemorrhage [Unknown]
  - Polymenorrhoea [Unknown]
